FAERS Safety Report 26042976 (Version 1)
Quarter: 2025Q4

REPORT INFORMATION
  Report Type: Spontaneous
  Country: US (occurrence: US)
  Receive Date: 20251113
  Receipt Date: 20251113
  Transmission Date: 20260118
  Serious: Yes (Other)
  Sender: TAKEDA
  Company Number: US-TAKEDA-2025TUS098272

PATIENT
  Age: 48 Year
  Sex: Female

DRUGS (10)
  1. ADDERALL XR [Suspect]
     Active Substance: AMPHETAMINE ASPARTATE\AMPHETAMINE SULFATE\DEXTROAMPHETAMINE SACCHARATE\DEXTROAMPHETAMINE SULFATE
     Indication: Narcolepsy
     Dosage: 10 MILLIGRAM
  2. ADDERALL XR [Suspect]
     Active Substance: AMPHETAMINE ASPARTATE\AMPHETAMINE SULFATE\DEXTROAMPHETAMINE SACCHARATE\DEXTROAMPHETAMINE SULFATE
     Indication: Cataplexy
     Dosage: 10 MILLIGRAM
  3. ADDERALL [Suspect]
     Active Substance: AMPHETAMINE ASPARTATE\AMPHETAMINE SULFATE\DEXTROAMPHETAMINE SACCHARATE\DEXTROAMPHETAMINE SULFATE
     Indication: Narcolepsy
     Dosage: UNK
  4. ADDERALL [Suspect]
     Active Substance: AMPHETAMINE ASPARTATE\AMPHETAMINE SULFATE\DEXTROAMPHETAMINE SACCHARATE\DEXTROAMPHETAMINE SULFATE
     Indication: Cataplexy
     Dosage: UNK
  5. LUMRYZ [Suspect]
     Active Substance: SODIUM OXYBATE
     Indication: Narcolepsy
     Dosage: 4.5 GRAM
     Dates: start: 20250712, end: 20250825
  6. LUMRYZ [Suspect]
     Active Substance: SODIUM OXYBATE
     Indication: Cataplexy
     Dosage: UNK
  7. CITALOPRAM [Suspect]
     Active Substance: CITALOPRAM
     Indication: Narcolepsy
     Dosage: UNK
  8. CITALOPRAM [Suspect]
     Active Substance: CITALOPRAM
     Indication: Cataplexy
     Dosage: UNK
  9. ARMODAFINIL [Suspect]
     Active Substance: ARMODAFINIL
     Indication: Narcolepsy
     Dosage: 250 MILLIGRAM
  10. ARMODAFINIL [Suspect]
     Active Substance: ARMODAFINIL
     Indication: Cataplexy
     Dosage: 250 MILLIGRAM

REACTIONS (2)
  - Hallucination, auditory [Recovered/Resolved]
  - Sleep paralysis [Recovered/Resolved]

NARRATIVE: CASE EVENT DATE: 20250101
